FAERS Safety Report 25437012 (Version 2)
Quarter: 2025Q3

REPORT INFORMATION
  Report Type: Report from Study
  Country: JP (occurrence: JP)
  Receive Date: 20250615
  Receipt Date: 20250710
  Transmission Date: 20251020
  Serious: Yes (Death, Hospitalization)
  Sender: SANOFI AVENTIS
  Company Number: JP-SAKK-2025SA149274AA

PATIENT
  Age: 74 Year
  Sex: Female
  Weight: 50.2 kg

DRUGS (23)
  1. ISATUXIMAB [Suspect]
     Active Substance: ISATUXIMAB
     Indication: Plasma cell myeloma refractory
     Dosage: 10 MG/KG, QOW
     Route: 041
     Dates: start: 20240417, end: 20240501
  2. ISATUXIMAB [Suspect]
     Active Substance: ISATUXIMAB
     Dosage: 10 MG/KG, QW
     Route: 041
     Dates: start: 20240314, end: 20240404
  3. ISATUXIMAB [Suspect]
     Active Substance: ISATUXIMAB
     Route: 041
  4. DEXAMETHASONE [Suspect]
     Active Substance: DEXAMETHASONE
     Indication: Plasma cell myeloma refractory
     Route: 065
     Dates: start: 20240508, end: 20240509
  5. DEXAMETHASONE [Suspect]
     Active Substance: DEXAMETHASONE
     Route: 065
     Dates: start: 20240314, end: 20240315
  6. DEXAMETHASONE [Suspect]
     Active Substance: DEXAMETHASONE
     Route: 065
     Dates: start: 20240321, end: 20240322
  7. DEXAMETHASONE [Suspect]
     Active Substance: DEXAMETHASONE
     Route: 065
     Dates: start: 20240328, end: 20240329
  8. DEXAMETHASONE [Suspect]
     Active Substance: DEXAMETHASONE
     Route: 065
     Dates: start: 20240405, end: 20240406
  9. DEXAMETHASONE [Suspect]
     Active Substance: DEXAMETHASONE
     Route: 065
     Dates: start: 20240417, end: 20240418
  10. DEXAMETHASONE [Suspect]
     Active Substance: DEXAMETHASONE
     Route: 065
     Dates: start: 20240424, end: 20240425
  11. DEXAMETHASONE [Suspect]
     Active Substance: DEXAMETHASONE
     Route: 065
     Dates: start: 20240501, end: 20240502
  12. KYPROLIS [Suspect]
     Active Substance: CARFILZOMIB
     Indication: Plasma cell myeloma refractory
     Dosage: 56 MG/M2, QW
     Route: 065
     Dates: start: 20240417, end: 20240424
  13. KYPROLIS [Suspect]
     Active Substance: CARFILZOMIB
     Route: 065
     Dates: start: 20240314, end: 20240315
  14. KYPROLIS [Suspect]
     Active Substance: CARFILZOMIB
     Route: 065
     Dates: start: 20240322, end: 20240322
  15. KYPROLIS [Suspect]
     Active Substance: CARFILZOMIB
     Route: 065
     Dates: start: 20240329, end: 20240329
  16. ACYCLOVIR [Concomitant]
     Active Substance: ACYCLOVIR
     Indication: Infection prophylaxis
     Route: 065
     Dates: start: 20240314
  17. ATOVAQUONE [Concomitant]
     Active Substance: ATOVAQUONE
     Indication: Infection prophylaxis
     Route: 065
     Dates: start: 20240314
  18. ACETAMINOPHEN\TRAMADOL HYDROCHLORIDE [Concomitant]
     Active Substance: ACETAMINOPHEN\TRAMADOL HYDROCHLORIDE
     Indication: Plasma cell myeloma refractory
     Route: 048
     Dates: start: 20240314
  19. CALONAL [Concomitant]
     Active Substance: ACETAMINOPHEN
     Indication: Chemotherapy side effect prophylaxis
     Route: 065
     Dates: start: 20240314
  20. CALONAL [Concomitant]
     Active Substance: ACETAMINOPHEN
     Indication: Plasma cell myeloma refractory
  21. RESTAMIN KOWA [DIPHENHYDRAMINE] [Concomitant]
     Indication: Chemotherapy side effect prophylaxis
     Route: 065
     Dates: start: 20240314
  22. CALCIUM CARBONATE\CHOLECALCIFEROL\MAGNESIUM CARBONATE [Concomitant]
     Active Substance: CALCIUM CARBONATE\CHOLECALCIFEROL\MAGNESIUM CARBONATE
     Indication: Plasma cell myeloma refractory
     Route: 048
     Dates: start: 20240314
  23. DICLOFENAC SODIUM [Concomitant]
     Active Substance: DICLOFENAC SODIUM
     Indication: Plasma cell myeloma refractory
     Route: 061
     Dates: start: 20240314

REACTIONS (4)
  - Disease progression [Fatal]
  - Platelet count decreased [Not Recovered/Not Resolved]
  - Gingival bleeding [Not Recovered/Not Resolved]
  - Oedema peripheral [Not Recovered/Not Resolved]

NARRATIVE: CASE EVENT DATE: 20240318
